FAERS Safety Report 16627338 (Version 1)
Quarter: 2019Q3

REPORT INFORMATION
  Report Type: Report from Study
  Country: CA (occurrence: CA)
  Receive Date: 20190724
  Receipt Date: 20190724
  Transmission Date: 20191004
  Serious: Yes (Death, Hospitalization, Other)
  Sender: FDA-Public Use
  Company Number: CA-PFIZER INC-2019310481

PATIENT
  Age: 60 Year
  Sex: Female

DRUGS (9)
  1. FRAGMIN [Suspect]
     Active Substance: DALTEPARIN SODIUM
     Indication: PRODUCT USED FOR UNKNOWN INDICATION
     Dosage: UNK
     Route: 058
  2. METFORMIN [Concomitant]
     Active Substance: METFORMIN HYDROCHLORIDE
     Indication: PRODUCT USED FOR UNKNOWN INDICATION
     Dosage: UNK
     Route: 065
  3. SUTENT [Concomitant]
     Active Substance: SUNITINIB MALATE
     Indication: PRODUCT USED FOR UNKNOWN INDICATION
     Dosage: 37.5 MG, 1X/DAY
     Route: 048
  4. SANDOSTATIN [Suspect]
     Active Substance: OCTREOTIDE ACETATE
     Dosage: 30 MG, EVERY 3 WEEKS
     Route: 030
  5. LOVENOX [Concomitant]
     Active Substance: ENOXAPARIN SODIUM
     Indication: PRODUCT USED FOR UNKNOWN INDICATION
     Dosage: UNK
     Route: 058
  6. SANDOSTATIN [Suspect]
     Active Substance: OCTREOTIDE ACETATE
     Dosage: 30 MG, MONTHLY
     Route: 030
  7. SANDOSTATIN [Suspect]
     Active Substance: OCTREOTIDE ACETATE
     Indication: CARCINOID TUMOUR
     Dosage: 30 MG, MONTHLY
     Route: 030
  8. SANDOSTATIN [Suspect]
     Active Substance: OCTREOTIDE ACETATE
     Dosage: 30 MG, EVERY 3 WEEKS
     Route: 030
  9. COUMADIN [Concomitant]
     Active Substance: WARFARIN SODIUM
     Indication: PRODUCT USED FOR UNKNOWN INDICATION
     Dosage: UNK
     Route: 065

REACTIONS (41)
  - Hepatic cancer [Fatal]
  - Second primary malignancy [Fatal]
  - Arthralgia [Fatal]
  - Exostosis [Fatal]
  - Fall [Fatal]
  - Abdominal pain [Fatal]
  - Blood glucose increased [Fatal]
  - Pain in extremity [Fatal]
  - Pain [Fatal]
  - Swelling [Fatal]
  - Pancreatic carcinoma [Fatal]
  - Epistaxis [Fatal]
  - Peripheral swelling [Fatal]
  - Nasopharyngitis [Fatal]
  - Vaginal haemorrhage [Fatal]
  - Hepatic enzyme increased [Fatal]
  - Hepatic infection bacterial [Fatal]
  - Hypoglycaemia [Fatal]
  - Diarrhoea [Fatal]
  - Movement disorder [Fatal]
  - Gait disturbance [Fatal]
  - Headache [Fatal]
  - Muscular weakness [Fatal]
  - Nausea [Fatal]
  - Face oedema [Fatal]
  - Gait inability [Fatal]
  - Dizziness [Fatal]
  - Groin pain [Fatal]
  - Pulmonary embolism [Fatal]
  - Appendicitis perforated [Fatal]
  - Abdominal pain upper [Fatal]
  - Inappropriate schedule of product administration [Fatal]
  - Pituitary tumour [Fatal]
  - Blood pressure increased [Fatal]
  - Fatigue [Fatal]
  - Menorrhagia [Fatal]
  - Oedema peripheral [Fatal]
  - Swelling face [Fatal]
  - Asthenia [Fatal]
  - Balance disorder [Fatal]
  - Joint swelling [Fatal]
